FAERS Safety Report 5048248-X (Version None)
Quarter: 2006Q3

REPORT INFORMATION
  Report Type: 
  Country: None (occurrence: None)
  Receive Date: 20060711
  Receipt Date: 20060628
  Transmission Date: 20061208
  Serious: Yes (Other)
  Sender: FDA-Public Use
  Company Number: JP-BRISTOL-MYERS SQUIBB COMPANY-13437702

PATIENT
  Age: 85 Year
  Sex: Male

DRUGS (14)
  1. GATIFLOXACIN [Suspect]
     Indication: ANGIOGRAM PULMONARY ABNORMAL
     Route: 048
     Dates: start: 20060602, end: 20060605
  2. GATIFLOXACIN [Suspect]
     Indication: C-REACTIVE PROTEIN INCREASED
     Route: 048
     Dates: start: 20060602, end: 20060605
  3. LASIX [Concomitant]
     Route: 048
  4. PANALDINE [Concomitant]
     Route: 048
  5. DILTIAZEM HCL [Concomitant]
     Route: 048
  6. ASPIRIN [Concomitant]
     Route: 048
  7. MEXITIL [Concomitant]
     Route: 048
  8. GLIMICRON [Concomitant]
     Dosage: INTERRUPTED ON 04-JUN-2006/06-JUN-2006
     Route: 048
  9. TAKEPRON [Concomitant]
     Route: 048
  10. MAGMITT [Concomitant]
     Route: 048
  11. BIOFERMIN [Concomitant]
     Route: 048
  12. FRANDOL [Concomitant]
     Route: 062
  13. TORSEMIDE [Concomitant]
     Route: 048
  14. ALDACTONE [Concomitant]
     Route: 048

REACTIONS (1)
  - HYPOGLYCAEMIA [None]
